FAERS Safety Report 6516153-5 (Version None)
Quarter: 2009Q4

REPORT INFORMATION
  Report Type: 
  Country: None (occurrence: None)
  Receive Date: 20091223
  Receipt Date: 20091214
  Transmission Date: 20100525
  Serious: Yes (Other)
  Sender: FDA-Public Use
  Company Number: US-JNJFOC-20091204783

PATIENT
  Sex: Female
  Weight: 102.06 kg

DRUGS (2)
  1. DURAGESIC-100 [Suspect]
     Indication: BACK PAIN
     Route: 062
  2. DURAGESIC-100 [Suspect]
     Route: 062

REACTIONS (7)
  - ANXIETY [None]
  - DRUG DOSE OMISSION [None]
  - FALL [None]
  - NERVOUS SYSTEM DISORDER [None]
  - PAIN [None]
  - PRODUCT QUALITY ISSUE [None]
  - WEIGHT DECREASED [None]
